FAERS Safety Report 24749801 (Version 2)
Quarter: 2024Q4

REPORT INFORMATION
  Report Type: Spontaneous
  Country: AR (occurrence: AR)
  Receive Date: 20241218
  Receipt Date: 20241223
  Transmission Date: 20250114
  Serious: No
  Sender: PFIZER
  Company Number: AR-PFIZER INC-202400318712

PATIENT
  Age: 13 Year
  Sex: Male

DRUGS (1)
  1. GENOTROPIN [Suspect]
     Active Substance: SOMATROPIN
     Indication: Growth hormone deficiency
     Dosage: 12 MG FOR 5 DAYS AND 1.6 MG FOR 2 DAYS
     Dates: start: 20200220

REACTIONS (4)
  - Device issue [Unknown]
  - Device occlusion [Unknown]
  - Device power source issue [Unknown]
  - Product administration interrupted [Unknown]
